FAERS Safety Report 6164496-X (Version None)
Quarter: 2009Q2

REPORT INFORMATION
  Report Type: 
  Country: None (occurrence: None)
  Receive Date: 20090421
  Receipt Date: 20090407
  Transmission Date: 20091009
  Serious: Yes (Hospitalization)
  Sender: FDA-Public Use
  Company Number: FR-1169204

PATIENT
  Age: 14 Year
  Sex: Female

DRUGS (1)
  1. SKIACOL (CYCLOPENTOLATE HYDROCHLORIDE0 0.5 % OPHTHALMIC SOLUTION EYE D [Suspect]
     Indication: FUNDOSCOPY
     Dosage: 1 GTT Q15 MIN FROM 3:50 TO 4:20 PM
     Route: 047
     Dates: start: 20090122, end: 20090122

REACTIONS (5)
  - DRUG EFFECT PROLONGED [None]
  - HEADACHE [None]
  - MYDRIASIS [None]
  - NAUSEA [None]
  - PHOTOPHOBIA [None]
